FAERS Safety Report 8595541-X (Version None)
Quarter: 2012Q3

REPORT INFORMATION
  Report Type: 
  Country: None (occurrence: None)
  Receive Date: 20120801
  Receipt Date: 20120719
  Transmission Date: 20120928
  Serious: Yes (Life-Threatening, Hospitalization, Other)
  Sender: FDA-Public Use
  Company Number: 1356067

PATIENT
  Age: 33 Year
  Sex: Male
  Weight: 93 kg

DRUGS (33)
  1. VANCOMYCIN [Suspect]
     Indication: PRODUCT USED FOR UNKNOWN INDICATION
  2. ONDANSETRON [Concomitant]
  3. DAUNORUBICIN HCL [Suspect]
     Indication: ACUTE MYELOID LEUKAEMIA
     Dosage: SEE IMAGE
     Route: 042
     Dates: start: 20120330, end: 20120401
  4. DAUNORUBICIN HCL [Suspect]
     Indication: ACUTE MYELOID LEUKAEMIA
     Dosage: SEE IMAGE
     Route: 042
     Dates: start: 20120414, end: 20120416
  5. SEROQUEL [Concomitant]
  6. IMIPENEM AND CILASTATIN [Suspect]
     Indication: INFECTION
     Dosage: 1000 MG, Q8 HOURS INTRAVENOUS (NOT OTHERWISE SPECIFIED)
     Route: 042
     Dates: start: 20120507, end: 20120528
  7. PERCOCET [Concomitant]
  8. NYSTATIN [Concomitant]
  9. CASPOFUNGIN ACETATE [Suspect]
     Indication: INFECTION
     Dosage: SEE IMAGE
     Route: 042
     Dates: start: 20120409
  10. CASPOFUNGIN ACETATE [Suspect]
     Indication: INFECTION
     Dosage: SEE IMAGE
     Route: 042
     Dates: start: 20120408, end: 20120408
  11. CASPOFUNGIN ACETATE [Suspect]
     Indication: INFECTION
     Dosage: SEE IMAGE
     Route: 042
     Dates: start: 20120520, end: 20120522
  12. ZYLOPRIM [Concomitant]
  13. ACETAMINOPHEN [Concomitant]
  14. CALCIUM CARBONATE [Concomitant]
  15. VORICONAZOLE [Suspect]
     Indication: PRODUCT USED FOR UNKNOWN INDICATION
     Dosage: 522 MG, Q12 HOURS, INTRAVENOUS (NOT OTHERWISE SPECIFIED)
     Route: 042
     Dates: start: 20120508, end: 20120508
  16. PENICILLIN G [Suspect]
     Indication: INFECTION
     Dosage: 24000000 U, Q24 HRS INTRAVENOUS (NOT OTHERWISE SPECIFIED)
     Route: 042
     Dates: start: 20120504, end: 20120509
  17. AMPHOTERICIN B [Suspect]
     Indication: FUNGAL INFECTION
     Dosage: 450 MG, UID/QD, INTRAVENOUS (NOT OTHERWISE SPECIFIED)
     Route: 042
     Dates: start: 20120506, end: 20120508
  18. AMPHOTERICIN B [Suspect]
     Indication: INFECTION PROPHYLAXIS
     Dosage: 450 MG, UID/QD, INTRAVENOUS (NOT OTHERWISE SPECIFIED)
     Route: 042
     Dates: start: 20120506, end: 20120508
  19. AZTREONAM [Suspect]
     Indication: BACTERIAL INFECTION
     Dosage: SEE IMAGE
     Route: 042
     Dates: start: 20120506, end: 20120507
  20. AZTREONAM [Suspect]
     Indication: BACTERIAL INFECTION
     Dosage: SEE IMAGE
     Route: 042
     Dates: start: 20120409, end: 20120410
  21. LORAZEPAM [Concomitant]
  22. XANAX [Concomitant]
  23. ALLOPURINOL [Concomitant]
  24. CEFEPIME [Suspect]
     Indication: INFECTION
     Dosage: 2 G, Q8 HOURS, INTRAVENOUS (NOT OTHERWISE SPECIFIED) ; INTRAVENOUS (NOT OTHERWISE SPECIFIED)
     Route: 042
     Dates: start: 20120329, end: 20120410
  25. CEFEPIME [Suspect]
     Indication: INFECTION
     Dosage: 2 G, Q8 HOURS, INTRAVENOUS (NOT OTHERWISE SPECIFIED) ; INTRAVENOUS (NOT OTHERWISE SPECIFIED)
     Route: 042
     Dates: start: 20120602, end: 20120605
  26. (INVESTIGATIONAL DRUG) [Suspect]
     Indication: ACUTE MYELOID LEUKAEMIA
     Dosage: 60 MG, UID/QD, ORAL ; 60 MG, UID/QD, ORAL
     Route: 048
     Dates: start: 20120417, end: 20120423
  27. (INVESTIGATIONAL DRUG) [Suspect]
     Indication: ACUTE MYELOID LEUKAEMIA
     Dosage: 60 MG, UID/QD, ORAL ; 60 MG, UID/QD, ORAL
     Route: 048
     Dates: start: 20120402, end: 20120408
  28. CALCIUM GLUCONATE [Concomitant]
  29. CYTARABINE [Suspect]
     Indication: ACUTE MYELOID LEUKAEMIA
     Dosage: SEE IMAGE
     Route: 042
     Dates: start: 20120414, end: 20120420
  30. CYTARABINE [Suspect]
     Indication: ACUTE MYELOID LEUKAEMIA
     Dosage: SEE IMAGE
     Route: 042
     Dates: start: 20120330, end: 20120405
  31. IBUPROFEN [Concomitant]
  32. HYDROXYZINE PAMOATE [Concomitant]
  33. CELEXA [Concomitant]

REACTIONS (17)
  - BACTERIAL SEPSIS [None]
  - BLOOD PH DECREASED [None]
  - ACUTE RESPIRATORY FAILURE [None]
  - ACUTE RESPIRATORY DISTRESS SYNDROME [None]
  - RENAL FAILURE ACUTE [None]
  - TACHYCARDIA [None]
  - SCLERAL HAEMORRHAGE [None]
  - HAEMODIALYSIS [None]
  - BLOOD BICARBONATE INCREASED [None]
  - BONE MARROW FAILURE [None]
  - TREATMENT FAILURE [None]
  - DEVICE RELATED INFECTION [None]
  - LACTOBACILLUS INFECTION [None]
  - FEBRILE NEUTROPENIA [None]
  - ALOPECIA [None]
  - BLOOD PH INCREASED [None]
  - BASE EXCESS DECREASED [None]
